FAERS Safety Report 6032422-X (Version None)
Quarter: 2008Q4

REPORT INFORMATION
  Report Type: 
  Country: None (occurrence: None)
  Receive Date: 20081222
  Receipt Date: 20080904
  Transmission Date: 20090506
  Serious: No
  Sender: FDA-Public Use
  Company Number: US-WYE-H05918908

PATIENT
  Age: 70 Year
  Sex: Female
  Weight: 136.2 kg

DRUGS (8)
  1. PRISTIQ [Suspect]
     Indication: DEPRESSION
     Dosage: 50 MG 1X PER 1 DAY. ORAL
     Route: 048
     Dates: start: 20080701
  2. PROPRANOLOL [Concomitant]
  3. LORATADINE [Concomitant]
  4. KLOR-CON [Concomitant]
  5. HYDROCHLOROTHIAZIDE [Concomitant]
  6. NEXIUM [Concomitant]
  7. SIMVASTATIN (ESOMEPRAZOLE) [Concomitant]
  8. NORFLEX [Concomitant]

REACTIONS (1)
  - BLOOD GLUCOSE INCREASED [None]
